FAERS Safety Report 7246259-7 (Version None)
Quarter: 2011Q1

REPORT INFORMATION
  Report Type: 
  Country: None (occurrence: None)
  Receive Date: 20110126
  Receipt Date: 20110113
  Transmission Date: 20110831
  Serious: Yes (Life-Threatening, Hospitalization, Other)
  Sender: FDA-Public Use
  Company Number: US-ELI_LILLY_AND_COMPANY-US201011007235

PATIENT
  Sex: Female

DRUGS (15)
  1. ISOSORBIDE DINITRATE [Concomitant]
  2. LANTUS [Concomitant]
  3. FORTEO [Suspect]
     Dosage: 20 UG, DAILY (1/D)
  4. VITAMIN D [Concomitant]
  5. METOLAZONE [Concomitant]
  6. ALLOPURINOL [Concomitant]
  7. FUROSEMIDE [Concomitant]
  8. NITROGLYCERIN [Concomitant]
  9. GABAPENTIN [Concomitant]
  10. METOPROLOL [Concomitant]
  11. VICODIN [Concomitant]
  12. COLCHICINE [Concomitant]
  13. HUMALOG [Concomitant]
  14. PRAVASTATIN [Concomitant]
  15. CLONAZEPAM [Concomitant]

REACTIONS (11)
  - HOSPITALISATION [None]
  - MUSCULOSKELETAL PAIN [None]
  - PRODUCTIVE COUGH [None]
  - SPUTUM DISCOLOURED [None]
  - CARDIO-RESPIRATORY ARREST [None]
  - MUSCLE SPASMS [None]
  - PAIN IN EXTREMITY [None]
  - DYSPNOEA [None]
  - PNEUMONIA [None]
  - GRIP STRENGTH DECREASED [None]
  - APPARENT DEATH [None]
